FAERS Safety Report 8450271-X (Version None)
Quarter: 2012Q2

REPORT INFORMATION
  Report Type: 
  Country: None (occurrence: None)
  Receive Date: 20120620
  Receipt Date: 20120611
  Transmission Date: 20120825
  Serious: Yes (Other)
  Sender: FDA-Public Use
  Company Number: BR-SANOFI-AVENTIS-2012SA041385

PATIENT
  Sex: Female
  Weight: 2.72 kg

DRUGS (2)
  1. HUMALOG [Suspect]
     Route: 064
  2. LANTUS [Suspect]
     Route: 064
     Dates: start: 20120501

REACTIONS (2)
  - CARDIAC MURMUR [None]
  - MATERNAL EXPOSURE DURING PREGNANCY [None]
